FAERS Safety Report 11047227 (Version 1)
Quarter: 2015Q2

REPORT INFORMATION
  Report Type: Spontaneous
  Country: None (occurrence: US)
  Receive Date: 20150420
  Receipt Date: 20150420
  Transmission Date: 20150821
  Serious: Yes (Hospitalization)
  Sender: FDA-Public Use
  Company Number: US-UNITED THERAPEUTICS-UNT-2015-004342

PATIENT
  Age: 75 Year
  Sex: Male
  Weight: 84.35 kg

DRUGS (1)
  1. TYVASO [Suspect]
     Active Substance: TREPROSTINIL
     Indication: PULMONARY ARTERIAL HYPERTENSION
     Dosage: 18-54 MCG, QID
     Dates: start: 20150220

REACTIONS (1)
  - Tooth abscess [Unknown]

NARRATIVE: CASE EVENT DATE: 201504
